FAERS Safety Report 9759933 (Version 3)
Quarter: 2014Q2

REPORT INFORMATION
  Report Type: Spontaneous
  Country: US (occurrence: US)
  Receive Date: 20131216
  Receipt Date: 20140404
  Transmission Date: 20141212
  Serious: Yes (Hospitalization, Other)
  Sender: FDA-Public Use
  Company Number: US-BAXTER-2013BAX049778

PATIENT
  Age: 85 Year
  Sex: Male

DRUGS (3)
  1. DIANEAL LOW CALCIUM [Suspect]
     Indication: PERITONEAL DIALYSIS
     Route: 033
  2. DIANEAL LOW CALCIUM [Suspect]
     Indication: PERITONEAL DIALYSIS
     Route: 033
  3. DIANEAL PD2 [Suspect]
     Indication: PERITONEAL DIALYSIS
     Route: 033

REACTIONS (10)
  - Rib fracture [Recovering/Resolving]
  - Swelling [Recovering/Resolving]
  - Muscle spasms [Unknown]
  - Fluid overload [Unknown]
  - Abdominal discomfort [Recovered/Resolved]
  - Fluid retention [Recovered/Resolved]
  - Wrong drug administered [Unknown]
  - Fall [Unknown]
  - Abdominal distension [Unknown]
  - Abdominal pain [Unknown]
